FAERS Safety Report 5988428-X (Version None)
Quarter: 2008Q4

REPORT INFORMATION
  Report Type: 
  Country: None (occurrence: None)
  Receive Date: 20081210
  Receipt Date: 20081201
  Transmission Date: 20090506
  Serious: Yes (Death, Other)
  Sender: FDA-Public Use
  Company Number: IT-WYE-H07093908

PATIENT
  Sex: Female

DRUGS (6)
  1. CORDARONE [Suspect]
     Indication: ATRIAL FIBRILLATION
     Route: 042
     Dates: start: 20081122, end: 20081123
  2. TALOFEN [Concomitant]
     Dosage: 25 MG ONCE
     Route: 030
     Dates: start: 20081123, end: 20081123
  3. PLAVIX [Concomitant]
     Indication: MYOCARDIAL INFARCTION
     Route: 048
     Dates: start: 20081101
  4. CARDIRENE [Concomitant]
     Indication: MYOCARDIAL INFARCTION
     Route: 048
     Dates: start: 20081101
  5. SELOKEN [Concomitant]
     Indication: MYOCARDIAL INFARCTION
     Route: 048
     Dates: start: 20081101
  6. CLEXANE [Concomitant]
     Indication: MYOCARDIAL INFARCTION
     Route: 058
     Dates: start: 20081101

REACTIONS (3)
  - CARDIO-RESPIRATORY ARREST [None]
  - HEPATITIS [None]
  - MULTI-ORGAN FAILURE [None]
